FAERS Safety Report 9338073 (Version 2)
Quarter: 2013Q3

REPORT INFORMATION
  Report Type: Spontaneous
  Country: DE (occurrence: DE)
  Receive Date: 20130610
  Receipt Date: 20130709
  Transmission Date: 20140515
  Serious: Yes (Other)
  Sender: FDA-Public Use
  Company Number: DE-AMGEN-DEUSP2013040357

PATIENT
  Age: 69 Year
  Sex: Male

DRUGS (7)
  1. ENBREL [Suspect]
     Indication: PRODUCT USED FOR UNKNOWN INDICATION
     Dosage: UNK
     Route: 065
     Dates: start: 2003
  2. ENBREL [Suspect]
     Indication: RHEUMATOID ARTHRITIS
  3. METHOTREXATE SODIUM [Suspect]
     Dosage: UNK
  4. CORTISONE [Concomitant]
     Dosage: UNK
  5. MTX                                /00113801/ [Concomitant]
     Dosage: UNK
     Dates: end: 201304
  6. MTX                                /00113801/ [Concomitant]
     Dosage: 15 MG, WEEKLY
  7. PREDNISOLON                        /00016201/ [Concomitant]
     Dosage: 0.5 MG, QD

REACTIONS (6)
  - Colon cancer [Unknown]
  - Breast neoplasm [Unknown]
  - Pain in extremity [Unknown]
  - Oedema peripheral [Unknown]
  - Arthralgia [Unknown]
  - Joint swelling [Unknown]
